FAERS Safety Report 5168870-X (Version None)
Quarter: 2006Q4

REPORT INFORMATION
  Report Type: 
  Country: None (occurrence: None)
  Receive Date: 20061206
  Receipt Date: 20061206
  Transmission Date: 20070319
  Serious: Yes (Other)
  Sender: FDA-Public Use
  Company Number: None

PATIENT
  Sex: Female
  Weight: 44.7247 kg

DRUGS (4)
  1. SEROQUEL [Suspect]
     Indication: ANXIETY
     Dosage: 150 MG   Q HS   PO
     Route: 048
     Dates: start: 20061002, end: 20061006
  2. SEROQUEL [Suspect]
     Indication: BODY DYSMORPHIC DISORDER
     Dosage: 150 MG   Q HS   PO
     Route: 048
     Dates: start: 20061002, end: 20061006
  3. ABILIFY [Suspect]
     Indication: ANXIETY
     Dosage: 2.5 MG - 5 MG  Q HS  PO
     Route: 048
     Dates: start: 20061006, end: 20061012
  4. ABILIFY [Suspect]
     Indication: BODY DYSMORPHIC DISORDER
     Dosage: 2.5 MG - 5 MG  Q HS  PO
     Route: 048
     Dates: start: 20061006, end: 20061012

REACTIONS (5)
  - BODY TEMPERATURE INCREASED [None]
  - FLUSHING [None]
  - MUSCLE RIGIDITY [None]
  - TACHYCARDIA [None]
  - TREMOR [None]
